FAERS Safety Report 6749720-4 (Version None)
Quarter: 2010Q2

REPORT INFORMATION
  Report Type: 
  Country: None (occurrence: None)
  Receive Date: 20100601
  Receipt Date: 20100527
  Transmission Date: 20101027
  Serious: Yes (Hospitalization)
  Sender: FDA-Public Use
  Company Number: JP-BAYER-201010372BYL

PATIENT
  Age: 61 Year
  Sex: Female
  Weight: 62 kg

DRUGS (16)
  1. NEXAVAR [Suspect]
     Indication: METASTATIC RENAL CELL CARCINOMA
     Dosage: TOTAL DAILY DOSE: 400 MG  UNIT DOSE: 200 MG
     Route: 048
     Dates: start: 20100115, end: 20100128
  2. NEXAVAR [Suspect]
     Route: 048
     Dates: start: 20100213, end: 20100412
  3. NEXAVAR [Suspect]
     Route: 048
     Dates: start: 20100508
  4. DIOVAN [Concomitant]
     Indication: HYPERTENSION
     Route: 048
     Dates: start: 20080301
  5. DIOVAN [Concomitant]
     Dosage: TOTAL DAILY DOSE: 120 MG  UNIT DOSE: 80 MG
     Route: 048
     Dates: start: 20100124, end: 20100412
  6. PREDNISOLONE [Concomitant]
     Indication: ADRENOCORTICAL STEROID THERAPY
     Dosage: TOTAL DAILY DOSE: 2 MG  UNIT DOSE: 1 MG
     Route: 048
     Dates: start: 20100115
  7. CORTRIL [Concomitant]
     Indication: ADRENOCORTICAL STEROID THERAPY
     Dosage: TOTAL DAILY DOSE: 10 MG  UNIT DOSE: 10 MG
     Route: 048
     Dates: start: 20070101
  8. AMLODIN OD [Concomitant]
     Indication: HYPERTENSION
     Route: 048
     Dates: start: 20100115
  9. AMLODIN OD [Concomitant]
     Dosage: TOTAL DAILY DOSE: 7.5 MG  UNIT DOSE: 5 MG
     Route: 048
     Dates: start: 20100123
  10. STOMARCON [Concomitant]
     Indication: GASTRITIS PROPHYLAXIS
     Dosage: TOTAL DAILY DOSE: 20 MG  UNIT DOSE: 20 MG
     Route: 048
  11. HIRUDOID [Concomitant]
     Indication: PROPHYLAXIS
     Dosage: AS NEEDED
     Route: 061
     Dates: start: 20100115
  12. KINDAVATE [Concomitant]
     Indication: RASH
     Dosage: AS NEEDED
     Route: 061
     Dates: start: 20100122
  13. ADALAT CC [Concomitant]
     Indication: HYPERTENSION
     Dosage: TOTAL DAILY DOSE: 20 MG  UNIT DOSE: 20 MG
     Route: 048
     Dates: start: 20100327, end: 20100418
  14. GASTER D [Concomitant]
     Indication: GASTRITIS PROPHYLAXIS
     Dosage: TOTAL DAILY DOSE: 20 MG  UNIT DOSE: 20 MG
     Route: 048
     Dates: start: 20100204
  15. URSO 250 [Concomitant]
     Indication: HEPATIC FUNCTION ABNORMAL
     Route: 048
     Dates: start: 20100326
  16. MAGMITT [Concomitant]
     Indication: CONSTIPATION PROPHYLAXIS
     Dosage: AS NEEDED
     Route: 048

REACTIONS (6)
  - ALANINE AMINOTRANSFERASE INCREASED [None]
  - ASPARTATE AMINOTRANSFERASE INCREASED [None]
  - BLOOD ALKALINE PHOSPHATASE INCREASED [None]
  - BLOOD LACTATE DEHYDROGENASE INCREASED [None]
  - GAMMA-GLUTAMYLTRANSFERASE INCREASED [None]
  - HERPES ZOSTER [None]
